FAERS Safety Report 13140194 (Version 1)
Quarter: 2017Q1

REPORT INFORMATION
  Report Type: Report from Study
  Country: BE (occurrence: BE)
  Receive Date: 20170123
  Receipt Date: 20170123
  Transmission Date: 20170428
  Serious: Yes (Other)
  Sender: FDA-Public Use
  Company Number: BE-MYLANLABS-2017M1003258

PATIENT

DRUGS (17)
  1. CYTARABINE. [Suspect]
     Active Substance: CYTARABINE
     Indication: PRODUCT USED FOR UNKNOWN INDICATION
     Dosage: 2 X 1000 MG/M 2 /DAY FOR SIX DAYS
     Route: 065
  2. EUCERIN                            /00021201/ [Concomitant]
     Active Substance: SALICYLIC ACID
     Route: 065
  3. EUCERIN                            /00021201/ [Concomitant]
     Active Substance: SALICYLIC ACID
     Route: 065
  4. EUCERIN                            /00021201/ [Concomitant]
     Active Substance: SALICYLIC ACID
     Route: 065
  5. EUCERIN                            /00021201/ [Concomitant]
     Active Substance: SALICYLIC ACID
     Route: 065
  6. EUCERIN                            /00021201/ [Concomitant]
     Active Substance: SALICYLIC ACID
     Route: 065
  7. CHLORHEXIDINE [Concomitant]
     Active Substance: CHLORHEXIDINE
     Indication: PRODUCT USED FOR UNKNOWN INDICATION
     Route: 065
  8. EUCERIN                            /00021201/ [Concomitant]
     Active Substance: SALICYLIC ACID
     Route: 065
  9. EUCERIN                            /00021201/ [Concomitant]
     Active Substance: SALICYLIC ACID
     Route: 065
  10. EUCERIN                            /00021201/ [Concomitant]
     Active Substance: SALICYLIC ACID
     Route: 065
  11. EUCERIN                            /00021201/ [Concomitant]
     Active Substance: SALICYLIC ACID
     Route: 065
  12. EUCERIN                            /00021201/ [Concomitant]
     Active Substance: SALICYLIC ACID
     Indication: PRODUCT USED FOR UNKNOWN INDICATION
     Route: 065
  13. EUCERIN                            /00021201/ [Concomitant]
     Active Substance: SALICYLIC ACID
     Route: 065
  14. EUCERIN                            /00021201/ [Concomitant]
     Active Substance: SALICYLIC ACID
     Route: 065
  15. EUCERIN                            /00021201/ [Concomitant]
     Active Substance: SALICYLIC ACID
     Route: 065
  16. EUCERIN                            /00021201/ [Concomitant]
     Active Substance: SALICYLIC ACID
     Route: 065
  17. EUCERIN                            /00021201/ [Concomitant]
     Active Substance: SALICYLIC ACID
     Route: 065

REACTIONS (2)
  - Rash maculo-papular [Unknown]
  - Dry skin [Unknown]
